FAERS Safety Report 5318577-0 (Version None)
Quarter: 2007Q2

REPORT INFORMATION
  Report Type: 
  Country: None (occurrence: None)
  Receive Date: 20070508
  Receipt Date: 20070501
  Transmission Date: 20071010
  Serious: Yes (Other)
  Sender: FDA-Public Use
  Company Number: US-BAYER-200711347BCC

PATIENT
  Age: 43 Year
  Sex: Male
  Weight: 82 kg

DRUGS (1)
  1. ORIGINAL ALKA SELTZER [Suspect]
     Indication: STOMACH DISCOMFORT
     Dosage: AS USED: 325 MG  UNIT DOSE: 325 MG
     Route: 048

REACTIONS (2)
  - BLOOD POTASSIUM INCREASED [None]
  - MYOCARDIAL INFARCTION [None]
